FAERS Safety Report 6322879-9 (Version None)
Quarter: 2009Q3

REPORT INFORMATION
  Report Type: 
  Country: None (occurrence: None)
  Receive Date: 20090824
  Receipt Date: 20090302
  Transmission Date: 20100115
  Serious: No
  Sender: FDA-Public Use
  Company Number: US-ABBOTT-09P-163-0560409-00

PATIENT
  Sex: Female
  Weight: 104.42 kg

DRUGS (14)
  1. NIASPAN [Suspect]
     Indication: BLOOD CHOLESTEROL INCREASED
     Route: 048
     Dates: start: 20090213, end: 20090225
  2. NIASPAN [Suspect]
     Indication: BLOOD TRIGLYCERIDES INCREASED
     Dosage: 1/2 TABLET
     Route: 048
     Dates: start: 20090225
  3. PROZAC [Concomitant]
     Indication: PANIC ATTACK
  4. CLONAZEPAM [Concomitant]
     Indication: PANIC ATTACK
  5. XANAX [Concomitant]
     Indication: PANIC ATTACK
  6. SEROQUEL [Concomitant]
     Indication: DRUG USE FOR UNKNOWN INDICATION
  7. METFORMIN HCL [Concomitant]
     Indication: DIABETES MELLITUS
  8. MAGNESIUM [Concomitant]
     Indication: DRUG USE FOR UNKNOWN INDICATION
  9. GLYBURIDE [Concomitant]
     Indication: DIABETES MELLITUS
  10. ALBUTEROL [Concomitant]
     Indication: WHEEZING
  11. LISINOPRIL [Concomitant]
     Indication: HYPERTENSION
  12. ASPIRIN [Concomitant]
     Indication: ARTERIOSCLEROSIS
  13. DIPHENHYDRAMINE HCL [Concomitant]
     Indication: DRUG USE FOR UNKNOWN INDICATION
  14. THYRIN [Concomitant]
     Indication: HYPOTHYROIDISM

REACTIONS (1)
  - BLOOD GLUCOSE INCREASED [None]
